FAERS Safety Report 17402842 (Version 2)
Quarter: 2020Q1

REPORT INFORMATION
  Report Type: Spontaneous
  Country: US (occurrence: US)
  Receive Date: 20200211
  Receipt Date: 20200330
  Transmission Date: 20200409
  Serious: No
  Sender: FDA-Public Use
  Company Number: US-PFIZER INC-2020058336

PATIENT
  Age: 67 Year
  Sex: Male

DRUGS (1)
  1. NARDIL [Suspect]
     Active Substance: PHENELZINE SULFATE
     Indication: DEPRESSION
     Dosage: 75 MG, DAILY (75MG, FIVE 15MG PILLS, EVERY DAY)
     Route: 048

REACTIONS (4)
  - Visual impairment [Unknown]
  - Musculoskeletal discomfort [Unknown]
  - False positive investigation result [Unknown]
  - Back disorder [Unknown]
